FAERS Safety Report 5775020-5 (Version None)
Quarter: 2008Q2

REPORT INFORMATION
  Report Type: 
  Country: None (occurrence: None)
  Receive Date: 20080612
  Receipt Date: 20080529
  Transmission Date: 20081010
  Serious: Yes (Death)
  Sender: FDA-Public Use
  Company Number: 2008AL006062

PATIENT
  Age: 82 Year
  Sex: Female

DRUGS (4)
  1. DIGOXIN [Suspect]
     Dosage: .125MG DAILY PO
     Route: 048
  2. THEOPHYLLINE [Concomitant]
  3. ZOCOR [Concomitant]
  4. ACTONEL [Concomitant]

REACTIONS (4)
  - ASTHENIA [None]
  - DIZZINESS [None]
  - FALL [None]
  - HEPATIC FAILURE [None]
